FAERS Safety Report 9551271 (Version 2)
Quarter: 2013Q4

REPORT INFORMATION
  Report Type: Spontaneous
  Country: US (occurrence: US)
  Receive Date: 20130925
  Receipt Date: 20131010
  Transmission Date: 20140711
  Serious: No
  Sender: FDA-Public Use
  Company Number: US-009507513-1309USA010813

PATIENT
  Sex: Female

DRUGS (2)
  1. COSOPT PF [Suspect]
     Indication: GLAUCOMA
     Dosage: 1 DROP IN EACH EYE TWICE DAILY
     Route: 047
     Dates: start: 201209
  2. ZIOPTAN [Concomitant]
     Dosage: UNK
     Route: 047

REACTIONS (7)
  - Throat tightness [Not Recovered/Not Resolved]
  - Dyspnoea [Not Recovered/Not Resolved]
  - Dizziness [Not Recovered/Not Resolved]
  - Blood pressure increased [Not Recovered/Not Resolved]
  - Nightmare [Unknown]
  - Local swelling [Unknown]
  - Joint swelling [Unknown]
